FAERS Safety Report 17769434 (Version 1)
Quarter: 2020Q2

REPORT INFORMATION
  Report Type: Spontaneous
  Country: US (occurrence: US)
  Receive Date: 20200512
  Receipt Date: 20200512
  Transmission Date: 20200714
  Serious: No
  Sender: FDA-Public Use
  Company Number: US-BAUSCH-BL-2020-012006

PATIENT
  Age: 69 Year
  Sex: Female
  Weight: 62.2 kg

DRUGS (2)
  1. METOPROLOL. [Concomitant]
     Active Substance: METOPROLOL
     Indication: PRODUCT USED FOR UNKNOWN INDICATION
     Route: 048
  2. BEPREVE [Suspect]
     Active Substance: BEPOTASTINE BESILATE
     Indication: EYE ALLERGY
     Dosage: STARTED ON 7/APR/2020 OR 8/APR/2020 TWICE A DAY IN EACH EYE
     Route: 047
     Dates: start: 202004, end: 20200409

REACTIONS (5)
  - Tongue blistering [Not Recovered/Not Resolved]
  - Feeling abnormal [Unknown]
  - Aphthous ulcer [Unknown]
  - Swollen tongue [Recovering/Resolving]
  - Glossodynia [Unknown]

NARRATIVE: CASE EVENT DATE: 202004
